FAERS Safety Report 9523574 (Version 1)
Quarter: 2013Q3

REPORT INFORMATION
  Report Type: Spontaneous
  Country: GB (occurrence: GB)
  Receive Date: 20130913
  Receipt Date: 20130913
  Transmission Date: 20140515
  Serious: Yes (Hospitalization)
  Sender: FDA-Public Use
  Company Number: PHHY2013GB098285

PATIENT
  Age: 40 Year
  Sex: Female

DRUGS (8)
  1. QUETIAPINE [Suspect]
     Indication: BIPOLAR DISORDER
     Dosage: 50 MG, QD
  2. QUETIAPINE [Suspect]
     Dosage: 300 MG, BID
  3. OLANZAPINE [Suspect]
     Indication: BIPOLAR DISORDER
     Dosage: 5 MG, QD
  4. OLANZAPINE [Suspect]
     Dosage: 10 MG, BID
  5. OLANZAPINE [Suspect]
     Dosage: 15 MG, BID
  6. LORAZEPAM [Suspect]
     Dosage: 2 MG, BID
  7. DIAZEPAM [Suspect]
     Dosage: 10 MG, BID
  8. CHLORPROMAZINE [Suspect]

REACTIONS (7)
  - Joint swelling [Recovered/Resolved]
  - Disinhibition [Recovered/Resolved]
  - Agitation [Recovered/Resolved]
  - Aggression [Recovered/Resolved]
  - Confusional state [Recovered/Resolved]
  - Oedema peripheral [Recovered/Resolved]
  - Exposure during pregnancy [Unknown]
